FAERS Safety Report 5247859-6 (Version None)
Quarter: 2007Q1

REPORT INFORMATION
  Report Type: 
  Country: None (occurrence: None)
  Receive Date: 20070223
  Receipt Date: 20070219
  Transmission Date: 20070707
  Serious: Yes (Death, Hospitalization)
  Sender: FDA-Public Use
  Company Number: PHRM2007FR00503

PATIENT
  Age: 83 Year
  Sex: Male

DRUGS (7)
  1. KARDEGIC [Suspect]
     Indication: CARDIOMYOPATHY
     Dosage: 1 DF, QD
     Route: 048
     Dates: end: 20060608
  2. OMEPRAZOLE [Suspect]
     Dosage: 20 MG, QD
     Route: 048
  3. TEMGESIC [Suspect]
     Indication: BRAIN NEOPLASM
     Dosage: 0.2 MG, QD
     Route: 048
  4. MICARDIS [Suspect]
     Indication: HYPERTENSION
     Dosage: 1 DF, QD
     Route: 048
     Dates: end: 20060608
  5. HEMIGOXINE NATIVELLE [Suspect]
     Indication: CARDIOMYOPATHY
     Route: 048
     Dates: end: 20060608
  6. NITRODERM [Suspect]
     Indication: CARDIOMYOPATHY
     Dosage: 1 DF, QD
     Route: 062
     Dates: end: 20060618
  7. NEO-MERCAZOLE TAB [Concomitant]
     Dates: start: 20060101

REACTIONS (8)
  - BLOOD THYROID STIMULATING HORMONE DECREASED [None]
  - CARDIOMYOPATHY [None]
  - DYSPHAGIA [None]
  - GASTROINTESTINAL TUBE INSERTION [None]
  - HAEMANGIOMA [None]
  - HYPERTHYROIDISM [None]
  - IODINE UPTAKE INCREASED [None]
  - THYROID NEOPLASM [None]
